FAERS Safety Report 18718760 (Version 1)
Quarter: 2021Q1

REPORT INFORMATION
  Report Type: Spontaneous
  Country: US (occurrence: US)
  Receive Date: 20210108
  Receipt Date: 20210108
  Transmission Date: 20210419
  Serious: No
  Sender: FDA-Public Use
  Company Number: US-TEVA-2021-US-1866191

PATIENT
  Sex: Male

DRUGS (5)
  1. ENTECAVIR. [Concomitant]
     Active Substance: ENTECAVIR
  2. BACLOFEN. [Concomitant]
     Active Substance: BACLOFEN
  3. ATORVASTATIN [Concomitant]
     Active Substance: ATORVASTATIN
  4. VITAMIN D [Concomitant]
     Active Substance: VITAMIN D NOS
  5. COPAXONE [Suspect]
     Active Substance: GLATIRAMER ACETATE
     Indication: MULTIPLE SCLEROSIS
     Dosage: UNKNOWN FORM STRENGTH
     Route: 065
     Dates: start: 2005

REACTIONS (1)
  - Asthenia [Unknown]
